FAERS Safety Report 25796039 (Version 1)
Quarter: 2025Q3

REPORT INFORMATION
  Report Type: Spontaneous
  Country: GB (occurrence: GB)
  Receive Date: 20250912
  Receipt Date: 20250912
  Transmission Date: 20251021
  Serious: Yes (Hospitalization, Disabling, Other)
  Sender: SANDOZ
  Company Number: None

PATIENT
  Age: 69 Year
  Sex: Male
  Weight: 73 kg

DRUGS (14)
  1. ZOLEDRONIC ACID [Suspect]
     Active Substance: ZOLEDRONIC ACID
     Indication: Product used for unknown indication
     Route: 042
     Dates: start: 20250904, end: 20250904
  2. RIVASTIGMINE [Concomitant]
     Active Substance: RIVASTIGMINE
     Indication: Ill-defined disorder
     Dosage: APPLY ONE DAILY
     Route: 065
     Dates: start: 20250506, end: 20250707
  3. AMLODIPINE [Concomitant]
     Active Substance: AMLODIPINE BESYLATE
     Indication: Ill-defined disorder
     Dosage: 1 TABLET ONCE A DAY
     Route: 065
     Dates: start: 20240910
  4. COCODAMOL [Concomitant]
     Active Substance: ACETAMINOPHEN\CODEINE PHOSPHATE
     Indication: Ill-defined disorder
     Route: 065
     Dates: start: 20250415
  5. NITROGLYCERIN [Concomitant]
     Active Substance: NITROGLYCERIN
     Indication: Ill-defined disorder
     Route: 065
     Dates: start: 20240910
  6. Hylo forte [Concomitant]
     Indication: Ill-defined disorder
     Dosage: ONE DROP THREE TIMES A DAY
     Route: 065
     Dates: start: 20250619
  7. IRBESARTAN [Concomitant]
     Active Substance: IRBESARTAN
     Indication: Ill-defined disorder
     Dosage: ONE TABLET DAILY TO LOWER BLOOD PRESSURE
     Route: 065
     Dates: start: 20240910
  8. LANSOPRAZOLE [Concomitant]
     Active Substance: LANSOPRAZOLE
     Indication: Ill-defined disorder
     Route: 065
     Dates: start: 20240910
  9. POLYETHYLENE GLYCOL 3350\POTASSIUM CHLORIDE\SODIUM BICARBONATE\SODIUM [Concomitant]
     Active Substance: POLYETHYLENE GLYCOL 3350\POTASSIUM CHLORIDE\SODIUM BICARBONATE\SODIUM CHLORIDE
     Indication: Ill-defined disorder
     Route: 065
     Dates: start: 20240910
  10. PEPPERMINT OIL [Concomitant]
     Active Substance: PEPPERMINT OIL
     Indication: Ill-defined disorder
     Dosage: TAKE ONE 3 TIMES/DAY
     Route: 065
     Dates: start: 20240910
  11. RIVAROXABAN [Concomitant]
     Active Substance: RIVAROXABAN
     Indication: Ill-defined disorder
     Dosage: TAKE ONE DAILY, WITH FOOD
     Route: 065
     Dates: start: 20240910
  12. ROSUVASTATIN [Concomitant]
     Active Substance: ROSUVASTATIN
     Indication: Ill-defined disorder
     Dosage: TAKE ONE DAILY
     Route: 065
     Dates: start: 20240910
  13. SOTALOL [Concomitant]
     Active Substance: SOTALOL
     Indication: Ill-defined disorder
     Dosage: TAKE ONE TWICE DAILY
     Route: 065
     Dates: start: 20240910
  14. TEGRETOL [Concomitant]
     Active Substance: CARBAMAZEPINE
     Indication: Ill-defined disorder
     Dosage: 1 TWICE A DAY (FOR ABSENCES)
     Route: 065
     Dates: start: 20240910

REACTIONS (5)
  - Myalgia [Recovering/Resolving]
  - Gait disturbance [Unknown]
  - Muscle fatigue [Unknown]
  - Malaise [Unknown]
  - Chest pain [Unknown]

NARRATIVE: CASE EVENT DATE: 20250905
